FAERS Safety Report 8555357-7 (Version None)
Quarter: 2012Q3

REPORT INFORMATION
  Report Type: 
  Country: None (occurrence: None)
  Receive Date: 20120731
  Receipt Date: 20111219
  Transmission Date: 20120928
  Serious: No
  Sender: FDA-Public Use
  Company Number: US-ASTRAZENECA-2011SE31435

PATIENT
  Age: 63 Year
  Sex: Male
  Weight: 68 kg

DRUGS (3)
  1. SEROQUEL [Suspect]
     Indication: DEPRESSION
     Route: 048
  2. ZOLOFT [Concomitant]
     Indication: DEPRESSION
  3. LITHIUM CARBONATE [Concomitant]

REACTIONS (8)
  - MALAISE [None]
  - INSOMNIA [None]
  - DEPRESSED MOOD [None]
  - DRUG DOSE OMISSION [None]
  - DEPRESSION [None]
  - FEELING ABNORMAL [None]
  - ANXIETY [None]
  - MOOD ALTERED [None]
